FAERS Safety Report 7015469-6 (Version None)
Quarter: 2010Q3

REPORT INFORMATION
  Report Type: 
  Country: None (occurrence: None)
  Receive Date: 20100927
  Receipt Date: 20100922
  Transmission Date: 20110219
  Serious: Yes (Life-Threatening)
  Sender: FDA-Public Use
  Company Number: CH-ASTRAZENECA-2010SE44386

PATIENT
  Age: 0 Week

DRUGS (1)
  1. MEPIVACAINE HCL [Suspect]
     Indication: ANAESTHESIA
     Route: 064

REACTIONS (1)
  - CARDIOMYOPATHY NEONATAL [None]
